FAERS Safety Report 6817974-1 (Version None)
Quarter: 2010Q3

REPORT INFORMATION
  Report Type: 
  Country: None (occurrence: None)
  Receive Date: 20100706
  Receipt Date: 20100625
  Transmission Date: 20110219
  Serious: Yes (Hospitalization, Other)
  Sender: FDA-Public Use
  Company Number: US-AMGEN-KDL403756

PATIENT
  Sex: Male
  Weight: 136.2 kg

DRUGS (15)
  1. PROCRIT [Suspect]
     Indication: ANAEMIA
     Route: 058
     Dates: start: 20091001
  2. CLONIDINE [Concomitant]
     Route: 048
  3. VITRON-C [Concomitant]
     Route: 048
  4. DITROPAN [Concomitant]
     Route: 048
  5. CORGARD [Concomitant]
     Route: 048
  6. ALDACTONE [Concomitant]
     Route: 048
  7. FINASTERIDE [Concomitant]
     Route: 048
  8. OMEPRAZOLE [Concomitant]
     Route: 048
  9. LOSARTAN POSTASSIUM [Concomitant]
     Route: 048
  10. QVAR 40 [Concomitant]
     Route: 045
  11. GLIPIZIDE [Concomitant]
     Route: 048
  12. PRO-AIR (PARKE DAVIS) [Concomitant]
  13. GLYBURIDE [Concomitant]
     Route: 048
  14. VIAGRA [Concomitant]
  15. LACTULOSE [Concomitant]
     Route: 048

REACTIONS (3)
  - AMNESIA [None]
  - DEHYDRATION [None]
  - HEPATIC ENCEPHALOPATHY [None]
